FAERS Safety Report 13101557 (Version 2)
Quarter: 2017Q1

REPORT INFORMATION
  Report Type: Spontaneous
  Country: US (occurrence: US)
  Receive Date: 20170110
  Receipt Date: 20170117
  Transmission Date: 20170428
  Serious: Yes (Other)
  Sender: FDA-Public Use
  Company Number: US-CELGENEUS-USA-2017011172

PATIENT
  Age: 60 Year
  Sex: Female

DRUGS (1)
  1. REVLIMID [Suspect]
     Active Substance: LENALIDOMIDE
     Indication: PARAPROTEINAEMIA
     Dosage: 15 MILLIGRAM
     Route: 048
     Dates: start: 20161205

REACTIONS (7)
  - Musculoskeletal pain [Unknown]
  - Diarrhoea [Unknown]
  - Anxiety [Unknown]
  - Fatigue [Unknown]
  - Dry mouth [Unknown]
  - Dysgeusia [Unknown]
  - Neck pain [Unknown]

NARRATIVE: CASE EVENT DATE: 20161228
